FAERS Safety Report 21441257 (Version 1)
Quarter: 2022Q4

REPORT INFORMATION
  Report Type: Spontaneous
  Country: US (occurrence: None)
  Receive Date: 20221010
  Receipt Date: 20221010
  Transmission Date: 20230113
  Serious: Yes (Other)
  Sender: FDA-Public Use
  Company Number: None

PATIENT
  Age: 56 Year
  Sex: Male
  Weight: 85.5 kg

DRUGS (1)
  1. QELBREE [Suspect]
     Active Substance: VILOXAZINE HYDROCHLORIDE
     Indication: Attention deficit hyperactivity disorder
     Dosage: OTHER QUANTITY : 1 CAPSULE(S);?FREQUENCY : DAILY;?
     Route: 048
     Dates: start: 20220908, end: 20220918

REACTIONS (7)
  - Pain [None]
  - Pain [None]
  - Back pain [None]
  - Muscle spasms [None]
  - Blood pressure increased [None]
  - Withdrawal syndrome [None]
  - Self-medication [None]

NARRATIVE: CASE EVENT DATE: 20220918
